FAERS Safety Report 23182466 (Version 1)
Quarter: 2023Q4

REPORT INFORMATION
  Report Type: Spontaneous
  Country: US (occurrence: None)
  Receive Date: 20231114
  Receipt Date: 20231114
  Transmission Date: 20240110
  Serious: Yes (Hospitalization)
  Sender: FDA-Public Use
  Company Number: None

PATIENT
  Sex: Male

DRUGS (1)
  1. DROXIDOPA [Suspect]
     Active Substance: DROXIDOPA
     Indication: Hypotension
     Dosage: OTHER FREQUENCY : 2CAPAT5AM+1CAPNOON;?
     Route: 048
     Dates: start: 202104

REACTIONS (2)
  - Presyncope [None]
  - Gastrointestinal disorder [None]
